FAERS Safety Report 7625799-2 (Version None)
Quarter: 2011Q3

REPORT INFORMATION
  Report Type: 
  Country: None (occurrence: None)
  Receive Date: 20110721
  Receipt Date: 20110712
  Transmission Date: 20111222
  Serious: Yes (Hospitalization, Other)
  Sender: FDA-Public Use
  Company Number: JP-NOVOPROD-331010

PATIENT
  Age: 78 Year
  Sex: Male
  Weight: 60 kg

DRUGS (29)
  1. LEVEMIR [Concomitant]
     Dosage: 18 U, QD
     Dates: start: 20110614, end: 20110615
  2. CIBENOL [Concomitant]
     Indication: ATRIAL FIBRILLATION
     Dosage: 300 MG, QD
     Route: 048
     Dates: start: 20051001
  3. HUMALOG [Concomitant]
     Dosage: 18-18-18 U
     Dates: start: 20110614, end: 20110615
  4. VICTOZA [Suspect]
     Dosage: 0.9 MG, QD
     Route: 058
     Dates: start: 20110617, end: 20110624
  5. HUMALOG [Concomitant]
     Dosage: 42 U, QD
     Dates: start: 20110627
  6. LEVEMIR [Concomitant]
     Dosage: 10 U, QD
     Dates: start: 20110620
  7. LEVEMIR [Concomitant]
     Dosage: 13 U, QD
     Dates: start: 20110701
  8. LEVEMIR [Concomitant]
     Dosage: 12 U, QD
     Dates: start: 20110630
  9. LEVEMIR [Concomitant]
     Dosage: 12 U, QD
  10. LEVEMIR [Concomitant]
     Dosage: 14 U, QD
     Dates: start: 20110627
  11. HUMALOG [Concomitant]
     Indication: TYPE 2 DIABETES MELLITUS
     Dosage: 18-18-18 U
     Dates: start: 20110527
  12. HUMALOG [Concomitant]
     Dosage: 22-22-22 U
  13. HUMALOG [Concomitant]
     Dosage: 10-10-10 U
     Dates: start: 20110620
  14. HUMALOG [Concomitant]
     Dosage: 12-12-12 U
     Dates: start: 20110630
  15. VICTOZA [Suspect]
     Indication: TYPE 2 DIABETES MELLITUS
     Dosage: 0.3 MG, QD
     Route: 058
     Dates: start: 20110613
  16. VICTOZA [Suspect]
     Dosage: 0.6 MG, QD
     Route: 058
     Dates: start: 20110615, end: 20110616
  17. LEVEMIR [Concomitant]
     Dosage: 14 U, QD
     Dates: start: 20110618, end: 20110619
  18. LEVEMIR [Concomitant]
     Dosage: 6 U, QD
     Dates: start: 20110621
  19. HUMALOG [Concomitant]
     Dosage: 16-16-16 U
     Dates: start: 20110616, end: 20110617
  20. HUMALOG [Concomitant]
     Dosage: 14-14-14 U
     Dates: start: 20110618, end: 20110619
  21. HUMALOG [Concomitant]
     Dosage: 14-13-14 U
     Dates: start: 20110701
  22. GASTER                             /00661201/ [Concomitant]
     Indication: GASTRIC ULCER
     Dosage: 40 MG, QD
     Route: 048
     Dates: start: 20070321
  23. ASPIRIN [Concomitant]
     Indication: CORONARY ARTERY BYPASS
     Dosage: 100 MG, QD
     Route: 048
     Dates: start: 20070321
  24. LEVEMIR [Concomitant]
     Indication: TYPE 2 DIABETES MELLITUS
     Dosage: 18 U, QD
     Dates: start: 20110527
  25. LEVEMIR [Concomitant]
     Dosage: 16 U, QD
     Dates: start: 20110616, end: 20110617
  26. HUMALOG [Concomitant]
     Dosage: 8-5-5 U
     Dates: start: 20110621
  27. WARFARIN SODIUM [Concomitant]
     Indication: CORONARY ARTERY BYPASS
     Dosage: 4 MG, QD
     Route: 048
     Dates: start: 20070321
  28. VASOLAN                            /00014302/ [Concomitant]
     Indication: ANGINA PECTORIS
     Dosage: 120 MG, QD
     Route: 048
     Dates: start: 20051001
  29. LANIRAPID [Concomitant]
     Indication: ANGINA PECTORIS
     Dosage: 0.1 MG, QD
     Route: 048
     Dates: start: 20051001

REACTIONS (3)
  - VOMITING [None]
  - LIVER DISORDER [None]
  - DEPRESSED LEVEL OF CONSCIOUSNESS [None]
